FAERS Safety Report 6010315-1 (Version None)
Quarter: 2008Q4

REPORT INFORMATION
  Report Type: 
  Country: None (occurrence: None)
  Receive Date: 20081218
  Receipt Date: 20080611
  Transmission Date: 20090506
  Serious: No
  Sender: FDA-Public Use
  Company Number: A0733450A

PATIENT
  Sex: Female

DRUGS (1)
  1. FLUTICASONE PROPIONATE [Suspect]
     Indication: MULTIPLE ALLERGIES
     Route: 045

REACTIONS (2)
  - DIZZINESS [None]
  - MALAISE [None]
